FAERS Safety Report 6220315-4 (Version None)
Quarter: 2009Q2

REPORT INFORMATION
  Report Type: 
  Country: None (occurrence: None)
  Receive Date: 20090601
  Receipt Date: 20090520
  Transmission Date: 20091009
  Serious: Yes (Life-Threatening, Hospitalization, Other)
  Sender: FDA-Public Use
  Company Number: THYM-1000948

PATIENT
  Age: 58 Year
  Sex: Male
  Weight: 93.3 kg

DRUGS (8)
  1. THYMOGLOBULIN [Suspect]
     Indication: CHRONIC LYMPHOCYTIC LEUKAEMIA
     Dosage: 1.7 MG/KG, QD; INTRAVENOUS
     Route: 042
     Dates: start: 20090114, end: 20090116
  2. SIROLIMUS (SIROLIMUS) [Suspect]
     Indication: IMMUNOSUPPRESSION
     Dates: start: 20090217
  3. TACROLIMUS [Concomitant]
  4. TOTAL BODY IRRADIATION (TOTAL BODY IRRADIATION) [Concomitant]
  5. CAFEPIME (CEFEPIME) [Concomitant]
  6. VALACYCLOVIR [Concomitant]
  7. MYCOPHENOLATE MOFETIL [Concomitant]
  8. VORICONAZOLE (VORICONAZOLE) [Concomitant]

REACTIONS (12)
  - ACIDOSIS [None]
  - ACUTE GRAFT VERSUS HOST DISEASE IN INTESTINE [None]
  - APHASIA [None]
  - ATRIAL FIBRILLATION [None]
  - CEREBRAL ISCHAEMIA [None]
  - CONVULSION [None]
  - HYPONATRAEMIA [None]
  - HYPOTENSION [None]
  - HYPOTHERMIA [None]
  - INFECTION [None]
  - RESPIRATORY ARREST [None]
  - THERAPEUTIC AGENT TOXICITY [None]
